FAERS Safety Report 24529681 (Version 1)
Quarter: 2024Q4

REPORT INFORMATION
  Report Type: Spontaneous
  Country: US (occurrence: US)
  Receive Date: 20241021
  Receipt Date: 20241021
  Transmission Date: 20250114
  Serious: No
  Sender: AMGEN
  Company Number: US-AMGEN-USASP2024205906

PATIENT
  Age: 52 Year
  Sex: Male

DRUGS (2)
  1. TEPEZZA [Suspect]
     Active Substance: TEPROTUMUMAB-TRBW
     Indication: Toxic goitre
     Dosage: 967 MILLIGRAM/KILOGRAM, Q3WK (WEEK 0: 967MG PIV X1 DOSE)
     Route: 040
     Dates: start: 20240906
  2. TEPEZZA [Suspect]
     Active Substance: TEPROTUMUMAB-TRBW
     Dosage: 1935 MILLIGRAM/KILOGRAM, Q3WK (WEEK 3: 1935MG PIV Q3WK X 7 DOSES )
     Route: 040
     Dates: start: 20240925

REACTIONS (2)
  - Anxiety [Recovered/Resolved]
  - Influenza like illness [Recovered/Resolved]

NARRATIVE: CASE EVENT DATE: 20240906
